FAERS Safety Report 8524192-8 (Version None)
Quarter: 2012Q3

REPORT INFORMATION
  Report Type: 
  Country: None (occurrence: None)
  Receive Date: 20120720
  Receipt Date: 20120716
  Transmission Date: 20120928
  Serious: Yes (Hospitalization, Other)
  Sender: FDA-Public Use
  Company Number: DE-PFIZER INC-2012115079

PATIENT
  Age: 26 Year
  Sex: Male
  Weight: 70 kg

DRUGS (13)
  1. LYRICA [Suspect]
     Dosage: 4 X 75 MG PER DAY
  2. LYRICA [Suspect]
     Dosage: 600 MG, DAILY
  3. MAGNESIOCARD [Suspect]
     Dosage: UNK, 4 TIMES PER DAY
  4. NICOTINE [Suspect]
     Dosage: ONE PACKAGE PER DAY
  5. METHADONE HCL [Suspect]
     Dosage: 5-10 ML/DAY
  6. COCAINE [Suspect]
     Dosage: 5 MG, 2-3X/ DAY
     Route: 042
  7. DIAZEPAM [Suspect]
     Dosage: UNK
  8. LYRICA [Suspect]
     Dosage: 75 MG, DAILY
     Dates: end: 20110705
  9. METHADONE HYDROCHLORIDE [Suspect]
     Indication: SUBSTANCE USE
     Dosage: 12 ML, DAILY
  10. HEROIN [Suspect]
     Dosage: UNK
     Route: 042
  11. DOMINAL FORTE [Suspect]
     Dosage: 40 MG, AS NEEDED
  12. LYRICA [Suspect]
     Indication: ANXIETY
     Dosage: 300 MG, 3X/DAY
  13. LYRICA [Suspect]
     Indication: DEPRESSION
     Dosage: 300 MG, 4X/DAY

REACTIONS (7)
  - DRUG ABUSE [None]
  - NIGHTMARE [None]
  - ABNORMAL BEHAVIOUR [None]
  - POOR QUALITY SLEEP [None]
  - POLYSUBSTANCE DEPENDENCE [None]
  - MENTAL DISORDER [None]
  - WITHDRAWAL SYNDROME [None]
